FAERS Safety Report 4338862-9 (Version None)
Quarter: 2004Q2

REPORT INFORMATION
  Report Type: 
  Country: None (occurrence: None)
  Receive Date: 20040409
  Receipt Date: 20040326
  Transmission Date: 20050107
  Serious: Yes (Hospitalization)
  Sender: FDA-Public Use
  Company Number: 2004-0006860

PATIENT
  Age: 45 Year
  Sex: Male

DRUGS (2)
  1. VIREAD [Suspect]
     Indication: HIV INFECTION
     Dosage: 300 MG
  2. BACTRIM [Concomitant]

REACTIONS (3)
  - BLOOD CREATINE INCREASED [None]
  - DIALYSIS [None]
  - LUNG DISORDER [None]
